FAERS Safety Report 4537722-8 (Version None)
Quarter: 2004Q4

REPORT INFORMATION
  Report Type: 
  Country: None (occurrence: None)
  Receive Date: 20041224
  Receipt Date: 20041217
  Transmission Date: 20050328
  Serious: Yes (Hospitalization)
  Sender: FDA-Public Use
  Company Number: US-MERCK-0412USA02206

PATIENT
  Age: 69 Year
  Sex: Male

DRUGS (6)
  1. VIOXX [Suspect]
     Route: 048
     Dates: start: 20030101, end: 20030101
  2. LISINOPRIL [Concomitant]
     Route: 065
  3. HYDROCHLOROTHIAZIDE [Concomitant]
     Route: 065
  4. LESCOL [Concomitant]
     Route: 065
  5. ASPIRIN [Concomitant]
     Route: 065
  6. [THERAPY UNSPECIFIED] [Concomitant]
     Route: 065

REACTIONS (5)
  - ASTHENIA [None]
  - CONTUSION [None]
  - DYSPNOEA [None]
  - HEARING IMPAIRED [None]
  - HYPOTENSION [None]
